FAERS Safety Report 9210385 (Version 2)
Quarter: 2013Q2

REPORT INFORMATION
  Report Type: Spontaneous
  Country: BR (occurrence: BR)
  Receive Date: 20130404
  Receipt Date: 20130620
  Transmission Date: 20140414
  Serious: Yes (Death, Other)
  Sender: FDA-Public Use
  Company Number: PHHY2013BR031683

PATIENT
  Age: 33 Year
  Sex: Female
  Weight: 65 kg

DRUGS (7)
  1. CODATEN [Suspect]
     Indication: PAIN
     Dosage: 3 DF
     Route: 048
  2. CODATEN [Suspect]
     Dosage: 50 MG 2 TABLETS FOR ONE WEEK
     Route: 048
  3. CODATEN [Suspect]
     Dosage: 4 DF FOR 4 MONTHS
     Route: 048
  4. CODATEN [Suspect]
     Dosage: 3 DF FOR 1 MONTHS
     Route: 048
  5. CODATEN [Suspect]
     Dosage: 1.5 DF
     Route: 048
  6. CODATEN [Suspect]
     Dosage: 1 DF
     Route: 048
  7. CODATEN [Suspect]
     Dosage: 2 DF
     Route: 048

REACTIONS (10)
  - Completed suicide [Fatal]
  - Drug dependence [Unknown]
  - Benign breast neoplasm [Recovering/Resolving]
  - Tendon rupture [Recovered/Resolved]
  - Nerve injury [Recovered/Resolved]
  - Fall [Recovered/Resolved]
  - Meniscus injury [Recovered/Resolved]
  - Tooth infection [Recovering/Resolving]
  - Swelling face [Recovering/Resolving]
  - Wrong technique in drug usage process [Unknown]
